FAERS Safety Report 8801612 (Version 1)
Quarter: 2012Q4

REPORT INFORMATION
  Report Type: 
  Country: US (occurrence: US)
  Receive Date: 20120921
  Receipt Date: 20120921
  Transmission Date: 20130627
  Serious: No
  Sender: FDA-Public Use
  Company Number: US-PFIZER INC-2012231563

PATIENT
  Sex: Female

DRUGS (1)
  1. AMLODIPINE BESILATE [Suspect]
     Indication: MYOCARDIAL INFARCTION
     Dosage: 5 mg, 2x/day
     Route: 048
     Dates: start: 201209

REACTIONS (2)
  - Gastric disorder [Unknown]
  - Gastrointestinal disorder [Unknown]
